FAERS Safety Report 18821428 (Version 1)
Quarter: 2021Q1

REPORT INFORMATION
  Report Type: Report from Study
  Country: None (occurrence: US)
  Receive Date: 20210202
  Receipt Date: 20210202
  Transmission Date: 20210419
  Serious: Yes (Other)
  Sender: FDA-Public Use
  Company Number: US-ABBVIE-21K-163-3750519-00

PATIENT
  Sex: Female

DRUGS (3)
  1. HUMIRA [Suspect]
     Active Substance: ADALIMUMAB
     Indication: CROHN^S DISEASE
     Dosage: CITRATE FREE
     Route: 058
  2. AMOXICILLIN. [Suspect]
     Active Substance: AMOXICILLIN
     Indication: ENDODONTIC PROCEDURE
     Route: 065
  3. VANCOMYCIN [Suspect]
     Active Substance: VANCOMYCIN
     Indication: GASTRIC INFECTION
     Route: 065

REACTIONS (7)
  - Artificial crown procedure [Unknown]
  - Stomach mass [Unknown]
  - Gastric haemorrhage [Unknown]
  - Abdominal distension [Recovering/Resolving]
  - Nausea [Unknown]
  - White blood cell count abnormal [Unknown]
  - Gastric infection [Recovering/Resolving]
